FAERS Safety Report 18072640 (Version 1)
Quarter: 2020Q3

REPORT INFORMATION
  Report Type: Spontaneous
  Country: US (occurrence: US)
  Receive Date: 20200725
  Receipt Date: 20200725
  Transmission Date: 20201103
  Serious: Yes (Hospitalization)
  Sender: FDA-Public Use
  Company Number: None

PATIENT
  Age: 66 Year
  Sex: Male
  Weight: 90.6 kg

DRUGS (2)
  1. CYTARABINE. [Suspect]
     Active Substance: CYTARABINE
     Dates: end: 20200714
  2. DAUNORUBICIN [Suspect]
     Active Substance: DAUNORUBICIN
     Dates: end: 20200711

REACTIONS (10)
  - Abdominal rigidity [None]
  - Abdominal distension [None]
  - Muscle spasms [None]
  - Enterovesical fistula [None]
  - Abdominal tenderness [None]
  - Abdominal abscess [None]
  - Gastrointestinal sounds abnormal [None]
  - Gastrointestinal wall thickening [None]
  - Diverticulitis [None]
  - Nausea [None]

NARRATIVE: CASE EVENT DATE: 20200723
